FAERS Safety Report 8532191-5 (Version None)
Quarter: 2012Q3

REPORT INFORMATION
  Report Type: 
  Country: None (occurrence: None)
  Receive Date: 20120723
  Receipt Date: 20120713
  Transmission Date: 20120928
  Serious: Yes (Other)
  Sender: FDA-Public Use
  Company Number: DK-RB-042642-12

PATIENT
  Sex: Male

DRUGS (6)
  1. OXAZEPAM [Concomitant]
     Indication: DRUG WITHDRAWAL SYNDROME
     Dosage: UNKNOWN DOSAGE DETAILS
     Route: 065
     Dates: start: 20110612
  2. CLONAZEPAM [Concomitant]
     Indication: PRODUCT USED FOR UNKNOWN INDICATION
     Dosage: UNKNOWN DOSAGE DETAILS
     Route: 065
     Dates: end: 20110612
  3. SUBOXONE [Suspect]
     Indication: PRODUCT USED FOR UNKNOWN INDICATION
     Dosage: UNKNOWN DOSAGE DETAILS AND UNIT DOSE
     Route: 065
     Dates: start: 20110612, end: 20110613
  4. PHENOBARBITAL TAB [Concomitant]
     Indication: DRUG WITHDRAWAL SYNDROME
     Dosage: UNKNOWN DOSAGE DETAILS
     Route: 065
     Dates: start: 20110612
  5. TRUXAL [Concomitant]
     Indication: SCHIZOPHRENIA, PARANOID TYPE
     Dosage: UNKNOWN DOSAGE DETAILS
     Route: 065
     Dates: end: 20120612
  6. CHLORDIAZEPOXID [Concomitant]
     Indication: DRUG WITHDRAWAL SYNDROME
     Dosage: UNKNOWN DOSAGE DETAILS
     Route: 065
     Dates: start: 20110613

REACTIONS (6)
  - RESPIRATORY DEPRESSION [None]
  - CYANOSIS [None]
  - PAIN [None]
  - ASTHENIA [None]
  - MOTOR DYSFUNCTION [None]
  - DEPRESSED LEVEL OF CONSCIOUSNESS [None]
